FAERS Safety Report 12642027 (Version 1)
Quarter: 2016Q3

REPORT INFORMATION
  Report Type: Spontaneous
  Country: US (occurrence: US)
  Receive Date: 20160810
  Receipt Date: 20160810
  Transmission Date: 20161109
  Serious: Yes (Other)
  Sender: FDA-Public Use
  Company Number: US-SHIRE-US201610010

PATIENT
  Sex: Female

DRUGS (2)
  1. LIALDA [Suspect]
     Active Substance: MESALAMINE
     Indication: COLITIS ULCERATIVE
     Dosage: UNK UNK, UNKNOWN
     Route: 048
     Dates: start: 201606
  2. LIALDA [Suspect]
     Active Substance: MESALAMINE
     Indication: DIVERTICULITIS
     Dosage: 1.2 G, UNKNOWN
     Route: 048
     Dates: start: 201608

REACTIONS (4)
  - Medication residue present [Unknown]
  - Colitis ulcerative [Unknown]
  - Diarrhoea [Not Recovered/Not Resolved]
  - Prescribed underdose [Not Recovered/Not Resolved]

NARRATIVE: CASE EVENT DATE: 201606
